FAERS Safety Report 5614114-1 (Version None)
Quarter: 2008Q1

REPORT INFORMATION
  Report Type: 
  Country: None (occurrence: None)
  Receive Date: 20080205
  Receipt Date: 20080125
  Transmission Date: 20080703
  Serious: Yes (Hospitalization)
  Sender: FDA-Public Use
  Company Number: JP-WYE-H02332608

PATIENT
  Age: 40 Year
  Sex: Female

DRUGS (3)
  1. TRIQUILAR-21 [Suspect]
     Indication: ENDOMETRIOSIS
     Dosage: NOT PROVIDED
     Route: 048
     Dates: start: 20070801, end: 20071201
  2. TRIQUILAR-21 [Suspect]
     Indication: CONTRACEPTION
  3. KEISHIBUKURYOUGAN [Concomitant]
     Dosage: 12 G
     Dates: start: 20070401

REACTIONS (2)
  - HYPERCOAGULATION [None]
  - THROMBOPHLEBITIS SUPERFICIAL [None]
